FAERS Safety Report 25167129 (Version 1)
Quarter: 2025Q2

REPORT INFORMATION
  Report Type: Spontaneous
  Country: US (occurrence: None)
  Receive Date: 20250405
  Receipt Date: 20250405
  Transmission Date: 20250717
  Serious: Yes (Other)
  Sender: FDA-CTU
  Company Number: None

PATIENT
  Age: 62 Year
  Sex: Female
  Weight: 78.75 kg

DRUGS (2)
  1. METHADONE [Suspect]
     Active Substance: METHADONE HYDROCHLORIDE
  2. DILAUDID [Suspect]
     Active Substance: HYDROMORPHONE HYDROCHLORIDE

REACTIONS (7)
  - Withdrawal syndrome [None]
  - Drug dependence [None]
  - Therapy interrupted [None]
  - Suicidal ideation [None]
  - Quality of life decreased [None]
  - Emotional disorder [None]
  - Emotional distress [None]

NARRATIVE: CASE EVENT DATE: 20241215
